FAERS Safety Report 9617201 (Version 1)
Quarter: 2013Q4

REPORT INFORMATION
  Report Type: Spontaneous
  Country: US (occurrence: US)
  Receive Date: 20131011
  Receipt Date: 20131011
  Transmission Date: 20140711
  Serious: No
  Sender: FDA-Public Use
  Company Number: US-PFIZER INC-2013290686

PATIENT
  Age: 62 Year
  Sex: Female
  Weight: 53.52 kg

DRUGS (12)
  1. SERTRALINE HCL [Suspect]
     Indication: DEPRESSION
     Dosage: 100 MG, DAILY
  2. SERTRALINE HCL [Suspect]
     Indication: ANXIETY
  3. CHANTIX [Suspect]
     Indication: SMOKING CESSATION THERAPY
     Dosage: UNK, 2X/DAY
     Dates: start: 201308
  4. METFORMIN [Concomitant]
     Indication: DIABETES MELLITUS
     Dosage: 250 MG IN THE MORNING AND 500 MG AT NIGHT
  5. LOSARTAN [Concomitant]
     Indication: HYPERTENSION
     Dosage: 50 MG, DAILY
  6. FUROSEMIDE [Concomitant]
     Dosage: 20 MG, 2X/DAY
  7. SIMVASTATIN [Concomitant]
     Indication: BLOOD CHOLESTEROL INCREASED
     Dosage: 20 MG, DAILY
  8. HYDROCODONE W/ACETAMINOPHEN [Concomitant]
     Indication: BACK PAIN
     Dosage: (HYDROCODONE BITARTRATE 5MG AND ACETAMINOPHEN AT 500MG), 3X/DAY
  9. KLOR-CON [Concomitant]
     Dosage: 10 MG, 2X/DAY
  10. SINGULAIR [Concomitant]
     Indication: HYPERSENSITIVITY
     Dosage: 10 MG, DAILY
  11. XOPENEX [Concomitant]
     Indication: CHRONIC OBSTRUCTIVE PULMONARY DISEASE
     Dosage: 1.25 MG, 4X/DAY
  12. ACETYLCYSTEINE [Concomitant]
     Indication: LUNG DISORDER
     Dosage: 6 MG, 4X/DAY

REACTIONS (7)
  - Drug ineffective [Unknown]
  - Malaise [Unknown]
  - Vomiting [Unknown]
  - Parosmia [Unknown]
  - Eating disorder [Unknown]
  - Nausea [Unknown]
  - Feeling abnormal [Unknown]
